FAERS Safety Report 6521571-5 (Version None)
Quarter: 2009Q4

REPORT INFORMATION
  Report Type: 
  Country: None (occurrence: None)
  Receive Date: 20091214
  Receipt Date: 20091214
  Transmission Date: 20100525
  Serious: Yes (Other)
  Sender: FDA-Public Use
  Company Number: 642667

PATIENT
  Age: 42 Year
  Sex: Female

DRUGS (2)
  1. PEGASYS [Suspect]
     Indication: HEPATITIS C
     Dosage: 180 UG 1 PER WEEK
     Dates: start: 20090625, end: 20090801
  2. RIBAVIRIN [Suspect]
     Indication: HEPATITIS C
     Dosage: 1200 MG DAILY
     Dates: start: 20090625, end: 20090801

REACTIONS (15)
  - AFFECT LABILITY [None]
  - ANXIETY [None]
  - ARTHRALGIA [None]
  - ARTHROPATHY [None]
  - CHILLS [None]
  - DRUG SCREEN POSITIVE [None]
  - HYPERKINESIA [None]
  - HYPOAESTHESIA [None]
  - LIP DISCOLOURATION [None]
  - NERVOUSNESS [None]
  - PRURITUS GENERALISED [None]
  - PYREXIA [None]
  - RESTLESSNESS [None]
  - TREMOR [None]
  - VOMITING [None]
